FAERS Safety Report 18550107 (Version 1)
Quarter: 2020Q4

REPORT INFORMATION
  Report Type: Report from Study
  Country: US (occurrence: US)
  Receive Date: 20201126
  Receipt Date: 20201126
  Transmission Date: 20210114
  Serious: Yes (Hospitalization)
  Sender: FDA-Public Use
  Company Number: US-GILEAD-2020-0505540

PATIENT
  Age: 6 Year
  Sex: Female

DRUGS (2)
  1. AZTREONAM LYSINE [Suspect]
     Active Substance: AZTREONAM LYSINE
     Indication: CYSTIC FIBROSIS
     Dosage: 75 MG, TID, FOR 28 DAYS ON, THEN 28 DAYS OFF
     Route: 055
  2. KALYDECO [Concomitant]
     Active Substance: IVACAFTOR
     Dosage: MIX 1 PACKET INTO 1 TEASPOONFUL (5 ML) OF SOFT FOOD OR LIQUID AND TAKE EVERY 12 HOURS WITH A FAT-CON

REACTIONS (2)
  - Pulmonary function test decreased [Unknown]
  - Rales [Unknown]

NARRATIVE: CASE EVENT DATE: 202010
